FAERS Safety Report 5361743-9 (Version None)
Quarter: 2007Q2

REPORT INFORMATION
  Report Type: 
  Country: None (occurrence: None)
  Receive Date: 20070615
  Receipt Date: 20070530
  Transmission Date: 20071010
  Serious: Yes (Hospitalization)
  Sender: FDA-Public Use
  Company Number: 157361USA

PATIENT
  Age: 76 Year
  Sex: Male

DRUGS (1)
  1. AMIODARONE HYDROCHLORIDE [Suspect]
     Indication: ATRIAL FIBRILLATION
     Dosage: 200 MG (1 IN 1 D)

REACTIONS (5)
  - GASTROINTESTINAL DISORDER [None]
  - GASTROINTESTINAL HYPOMOTILITY [None]
  - ILEUS [None]
  - INTESTINAL OBSTRUCTION [None]
  - SMALL INTESTINAL OBSTRUCTION [None]
